FAERS Safety Report 11513732 (Version 1)
Quarter: 2015Q3

REPORT INFORMATION
  Report Type: Spontaneous
  Country: US (occurrence: US)
  Receive Date: 20150903
  Receipt Date: 20150903
  Transmission Date: 20151125
  Serious: No
  Sender: FDA-Public Use
  Company Number: US-ELI_LILLY_AND_COMPANY-US201211003742

PATIENT
  Age: 42 Year
  Sex: Female

DRUGS (7)
  1. NEXIUM [Concomitant]
     Active Substance: ESOMEPRAZOLE MAGNESIUM
  2. ATIVAN [Concomitant]
     Active Substance: LORAZEPAM
  3. ADDERALL [Concomitant]
     Active Substance: AMPHETAMINE ASPARTATE\AMPHETAMINE SULFATE\DEXTROAMPHETAMINE SACCHARATE\DEXTROAMPHETAMINE SULFATE
  4. MAXALT                                  /NET/ [Concomitant]
     Indication: MIGRAINE
  5. CYMBALTA [Suspect]
     Active Substance: DULOXETINE HYDROCHLORIDE
     Indication: DEPRESSION
     Dosage: 30 MG, QD
     Dates: start: 20121017, end: 20121103
  6. ATENOLOL. [Concomitant]
     Active Substance: ATENOLOL
  7. ASPIRIN. [Concomitant]
     Active Substance: ASPIRIN
     Indication: HEADACHE

REACTIONS (12)
  - Influenza like illness [Unknown]
  - Disorientation [Unknown]
  - Crying [Unknown]
  - Abdominal pain [Unknown]
  - Diarrhoea [Unknown]
  - Intentional product misuse [Unknown]
  - Malaise [Unknown]
  - Confusional state [Unknown]
  - Vomiting [Unknown]
  - Drug withdrawal syndrome [Unknown]
  - Nausea [Unknown]
  - Thinking abnormal [Unknown]
